FAERS Safety Report 16368067 (Version 2)
Quarter: 2019Q2

REPORT INFORMATION
  Report Type: Report from Study
  Country: US (occurrence: US)
  Receive Date: 20190529
  Receipt Date: 20190618
  Transmission Date: 20190711
  Serious: Yes (Other)
  Sender: FDA-Public Use
  Company Number: US-MALLINCKRODT-T201903806

PATIENT
  Sex: Male

DRUGS (2)
  1. REPOSITORY CORTICOTROPIN INJECTION [Suspect]
     Active Substance: CORTICOTROPIN
     Dosage: 80 UNITS / 1 ML, EVERY 4 DAYS (WEDNESDAY/ SATURDAY AND MONDAY AND TUESDAY)
     Route: 058
     Dates: start: 20180609
  2. REPOSITORY CORTICOTROPIN INJECTION [Suspect]
     Active Substance: CORTICOTROPIN
     Indication: RHEUMATOID ARTHRITIS
     Dosage: UNK, TWICE A WEEK (WEDNESDAY/ SATURDAY)
     Route: 065

REACTIONS (5)
  - Immunodeficiency [Unknown]
  - Myalgia [Unknown]
  - Therapeutic response shortened [Unknown]
  - Muscle spasms [Unknown]
  - Sinusitis [Unknown]
